FAERS Safety Report 8983309 (Version 1)
Quarter: 2012Q4

REPORT INFORMATION
  Report Type: 
  Country: US (occurrence: US)
  Receive Date: 20121224
  Receipt Date: 20121224
  Transmission Date: 20130627
  Serious: No
  Sender: FDA-Public Use
  Company Number: US-009507513-1212USA008818

PATIENT
  Age: 32 None
  Sex: Female
  Weight: 73.92 kg

DRUGS (2)
  1. NUVARING [Suspect]
     Indication: CONTRACEPTION
     Dosage: 1 ring, q3w
     Dates: start: 20121017
  2. NUVARING [Suspect]
     Indication: DYSMENORRHOEA

REACTIONS (2)
  - Menstruation delayed [Unknown]
  - Hypomenorrhoea [Unknown]
